FAERS Safety Report 7655312-5 (Version None)
Quarter: 2011Q3

REPORT INFORMATION
  Report Type: 
  Country: None (occurrence: None)
  Receive Date: 20110729
  Receipt Date: 20110716
  Transmission Date: 20111222
  Serious: Yes (Death, Other)
  Sender: FDA-Public Use
  Company Number: 2011AP001509

PATIENT
  Age: 77 Year
  Sex: Female

DRUGS (2)
  1. FLUCONAZOLE [Suspect]
     Indication: PRODUCT USED FOR UNKNOWN INDICATION
  2. AMLODIPINE BESYLATE [Suspect]
     Indication: HYPERTENSION

REACTIONS (6)
  - DIZZINESS [None]
  - INHIBITORY DRUG INTERACTION [None]
  - DRUG LEVEL ABOVE THERAPEUTIC [None]
  - HYPOTENSION [None]
  - ASTHENIA [None]
  - ASPHYXIA [None]
